FAERS Safety Report 8120662-5 (Version None)
Quarter: 2012Q1

REPORT INFORMATION
  Report Type: 
  Country: None (occurrence: None)
  Receive Date: 20120207
  Receipt Date: 20120128
  Transmission Date: 20120608
  Serious: Yes (Hospitalization)
  Sender: FDA-Public Use
  Company Number: US-BAYER-2011-001502

PATIENT
  Age: 39 Year
  Sex: Female

DRUGS (10)
  1. YAZ [Suspect]
     Indication: CONTRACEPTION
     Dosage: UNK
     Dates: start: 20060401, end: 20081201
  2. PREDNISONE [Concomitant]
     Dosage: 30 MG, UNK
     Route: 048
  3. MULTI-VITAMIN [Concomitant]
  4. PENTASA [Concomitant]
     Indication: CROHN'S DISEASE
     Dosage: UNK
     Dates: start: 19960101, end: 20080101
  5. NYSTATIN [Concomitant]
     Route: 048
  6. FERROUS SULFATE TAB [Concomitant]
     Indication: MEDICAL DIET
     Dosage: 65 MG, QD
     Dates: start: 20080101
  7. DROSPIRENONE AND ETHINYL ESTRADIOL [Suspect]
     Indication: CONTRACEPTION
     Dosage: UNK
     Dates: start: 20060401, end: 20081201
  8. MEIJER WOMEN+#8217;S FORMULA [Concomitant]
     Indication: MEDICAL DIET
     Dosage: UNK UNK, QD
     Dates: start: 20080101
  9. YASMIN [Suspect]
     Indication: CONTRACEPTION
     Dosage: UNK
     Route: 048
     Dates: start: 20060401, end: 20081201
  10. FISH OIL [Concomitant]
     Indication: DYSPEPSIA
     Dosage: 1000 MG, QD

REACTIONS (7)
  - ANXIETY [None]
  - MESENTERIC VEIN THROMBOSIS [None]
  - PAIN [None]
  - EMOTIONAL DISTRESS [None]
  - TREMOR [None]
  - PYREXIA [None]
  - CHILLS [None]
